FAERS Safety Report 12796982 (Version 1)
Quarter: 2016Q3

REPORT INFORMATION
  Report Type: Spontaneous
  Country: US (occurrence: US)
  Receive Date: 20160929
  Receipt Date: 20160929
  Transmission Date: 20161109
  Serious: No
  Sender: FDA-Public Use
  Company Number: US-KOWA-15US001234

PATIENT
  Age: 78 Year
  Sex: Male

DRUGS (2)
  1. LIVALO [Suspect]
     Active Substance: PITAVASTATIN CALCIUM
     Dosage: 2 MG, QIW
     Dates: end: 201501
  2. LIVALO [Suspect]
     Active Substance: PITAVASTATIN CALCIUM
     Indication: BLOOD CHOLESTEROL
     Dosage: 2 MG, TIW
     Dates: start: 2014

REACTIONS (2)
  - Off label use [Not Recovered/Not Resolved]
  - No adverse event [Recovered/Resolved]

NARRATIVE: CASE EVENT DATE: 2014
